FAERS Safety Report 19773549 (Version 1)
Quarter: 2021Q3

REPORT INFORMATION
  Report Type: Spontaneous
  Country: ES (occurrence: ES)
  Receive Date: 20210901
  Receipt Date: 20210901
  Transmission Date: 20211014
  Serious: Yes (Other)
  Sender: FDA-Public Use
  Company Number: ES-PFIZER INC-202101084549

PATIENT
  Age: 71 Year
  Sex: Female

DRUGS (5)
  1. DEPRAX [TRAZODONE HYDROCHLORIDE] [Concomitant]
     Active Substance: TRAZODONE HYDROCHLORIDE
     Dosage: UNK
     Route: 065
     Dates: end: 2021
  2. GABAPENTIN. [Suspect]
     Active Substance: GABAPENTIN
     Dosage: 100 MG, ALTERNATE DAY
     Dates: end: 2021
  3. LAMICTAL [Concomitant]
     Active Substance: LAMOTRIGINE
     Dosage: UNK
  4. RIVOTRIL [Concomitant]
     Active Substance: CLONAZEPAM
     Dosage: UNK
  5. GABAPENTIN. [Suspect]
     Active Substance: GABAPENTIN
     Dosage: 100 MG, 1X/DAY
     Route: 048
     Dates: end: 202101

REACTIONS (4)
  - Visual impairment [Not Recovered/Not Resolved]
  - Malaise [Recovering/Resolving]
  - Eye haemorrhage [Not Recovered/Not Resolved]
  - Diplopia [Not Recovered/Not Resolved]

NARRATIVE: CASE EVENT DATE: 20210503
